FAERS Safety Report 21586867 (Version 1)
Quarter: 2022Q4

REPORT INFORMATION
  Report Type: Spontaneous
  Country: US (occurrence: None)
  Receive Date: 20221110
  Receipt Date: 20221110
  Transmission Date: 20230113
  Serious: Yes (Hospitalization)
  Sender: FDA-Public Use
  Company Number: None

PATIENT
  Sex: Male

DRUGS (15)
  1. HUMIRA [Suspect]
     Active Substance: ADALIMUMAB
     Indication: Psoriasis
     Dosage: 40 MG/0.8ML??INJECT 0.8 ML (40 MG TOTAL) UNDER THE SKIN EVERY 14 (FOURTEEN) DAYS. ?
     Route: 058
     Dates: start: 20180629
  2. HUMIRA [Suspect]
     Active Substance: ADALIMUMAB
     Dosage: OTHER QUANTITY : 8.0ML (40 MG TOTAL;?FREQUENCY : EVERY OTHER WEEK;?
     Route: 058
  3. CRANBERRY TAB [Concomitant]
  4. FOLIC ACID [Concomitant]
     Active Substance: FOLIC ACID
  5. HALOBETASOL OIN [Concomitant]
  6. HYDROCHLOROTHIAZIDE [Concomitant]
     Active Substance: HYDROCHLOROTHIAZIDE
  7. IBUPROFEN [Concomitant]
     Active Substance: IBUPROFEN
  8. M-M-R II [Concomitant]
     Active Substance: MEASLES VIRUS STRAIN ENDERS^ ATTENUATED EDMONSTON LIVE ANTIGEN\MUMPS VIRUS STRAIN B LEVEL JERYL LYNN
  9. METHOTREXATE [Concomitant]
     Active Substance: METHOTREXATE
  10. MULTIVITAMIN TAB MEN 50+ [Concomitant]
  11. PREDNISONE [Concomitant]
     Active Substance: PREDNISONE
  12. TAMSULOSIN [Concomitant]
     Active Substance: TAMSULOSIN
  13. HERBALS\TURMERIC [Concomitant]
     Active Substance: HERBALS\TURMERIC
  14. TWINRIX [Concomitant]
     Active Substance: HEPATITIS A VIRUS STRAIN HM175 ANTIGEN (FORMALDEHYDE INACTIVATED)\HEPATITIS B VIRUS SUBTYPE ADW2 HBS
  15. VERAPAMIL [Concomitant]
     Active Substance: VERAPAMIL HYDROCHLORIDE

REACTIONS (1)
  - Surgery [None]
